FAERS Safety Report 7290785-1 (Version None)
Quarter: 2011Q1

REPORT INFORMATION
  Report Type: 
  Country: None (occurrence: None)
  Receive Date: 20110214
  Receipt Date: 20110208
  Transmission Date: 20110831
  Serious: Yes (Other)
  Sender: FDA-Public Use
  Company Number: AU-ROCHE-758749

PATIENT
  Sex: Male

DRUGS (2)
  1. RIBAVIRIN [Suspect]
     Route: 065
  2. PEGASYS [Suspect]
     Route: 065

REACTIONS (2)
  - LOSS OF CONSCIOUSNESS [None]
  - RHABDOMYOLYSIS [None]
